FAERS Safety Report 8233358-6 (Version None)
Quarter: 2012Q1

REPORT INFORMATION
  Report Type: 
  Country: None (occurrence: None)
  Receive Date: 20120323
  Receipt Date: 20120323
  Transmission Date: 20120608
  Serious: No
  Sender: FDA-Public Use
  Company Number: None

PATIENT

DRUGS (2)
  1. ALLEGRA D 24 HOUR [Suspect]
  2. ALLEGRA D 24 HOUR [Suspect]

REACTIONS (6)
  - NAUSEA [None]
  - DRUG DISPENSING ERROR [None]
  - POOR QUALITY SLEEP [None]
  - PRODUCT PACKAGING ISSUE [None]
  - MEDICATION ERROR [None]
  - INCORRECT DRUG DOSAGE FORM ADMINISTERED [None]
